FAERS Safety Report 17727209 (Version 3)
Quarter: 2020Q2

REPORT INFORMATION
  Report Type: Spontaneous
  Country: GE (occurrence: GE)
  Receive Date: 20200430
  Receipt Date: 20200605
  Transmission Date: 20200714
  Serious: Yes (Death, Hospitalization)
  Sender: FDA-Public Use
  Company Number: GE-ROCHE-2589540

PATIENT
  Age: 54 Year
  Sex: Female
  Weight: 98 kg

DRUGS (8)
  1. ACTEMRA [Suspect]
     Active Substance: TOCILIZUMAB
     Indication: RHEUMATOID ARTHRITIS
     Dosage: 162MG /0.9ML
     Route: 058
     Dates: start: 20200217
  2. MEDROL [Concomitant]
     Active Substance: METHYLPREDNISOLONE
     Route: 065
  3. ACTEMRA [Suspect]
     Active Substance: TOCILIZUMAB
     Dosage: 162MG /0.9ML
     Route: 058
     Dates: start: 20200323
  4. ACTEMRA [Suspect]
     Active Substance: TOCILIZUMAB
     Dosage: 162MG /0.9ML
     Route: 058
     Dates: start: 20200413
  5. METHOTREXATE. [Concomitant]
     Active Substance: METHOTREXATE
     Route: 065
  6. MEDROL [Concomitant]
     Active Substance: METHYLPREDNISOLONE
     Route: 065
  7. ACTEMRA [Suspect]
     Active Substance: TOCILIZUMAB
     Dosage: 162MG /0.9ML
     Route: 058
     Dates: start: 20200330
  8. ACTEMRA [Suspect]
     Active Substance: TOCILIZUMAB
     Dosage: 162MG /0.9ML
     Route: 058
     Dates: start: 20200406

REACTIONS (1)
  - Haemorrhagic infarction [Fatal]

NARRATIVE: CASE EVENT DATE: 20200417
